FAERS Safety Report 20112113 (Version 2)
Quarter: 2022Q1

REPORT INFORMATION
  Report Type: Spontaneous
  Country: TR (occurrence: None)
  Receive Date: 20211125
  Receipt Date: 20220110
  Transmission Date: 20220423
  Serious: Yes (Other)
  Sender: FDA-Public Use
  Company Number: TR-ROCHE-2963358

PATIENT
  Sex: Male

DRUGS (1)
  1. ERIVEDGE [Suspect]
     Active Substance: VISMODEGIB
     Indication: Basal cell carcinoma
     Dosage: 18 MONTHS.
     Route: 048
     Dates: end: 202103

REACTIONS (5)
  - Muscle spasms [Recovered/Resolved]
  - Alopecia [Not Recovered/Not Resolved]
  - Onychoclasis [Recovered/Resolved]
  - Nail bed tenderness [Recovered/Resolved]
  - Toothache [Recovered/Resolved]
